FAERS Safety Report 6795809-3 (Version None)
Quarter: 2010Q2

REPORT INFORMATION
  Report Type: 
  Country: None (occurrence: None)
  Receive Date: 20100625
  Receipt Date: 20100617
  Transmission Date: 20101027
  Serious: Yes (Hospitalization)
  Sender: FDA-Public Use
  Company Number: A0790002A

PATIENT
  Age: 55 Year
  Sex: Female
  Weight: 116.4 kg

DRUGS (4)
  1. AVANDIA [Suspect]
     Indication: DIABETES MELLITUS
     Dosage: 2MG TWICE PER DAY
     Route: 048
     Dates: start: 20060101, end: 20070101
  2. METFORMIN [Concomitant]
  3. DIOVAN [Concomitant]
  4. METOPROLOL [Concomitant]

REACTIONS (4)
  - CARDIAC DISORDER [None]
  - CEREBRAL ARTERY STENOSIS [None]
  - CEREBROVASCULAR ACCIDENT [None]
  - THROMBOSIS [None]
